FAERS Safety Report 4712622-9 (Version None)
Quarter: 2005Q3

REPORT INFORMATION
  Report Type: 
  Country: None (occurrence: None)
  Receive Date: 20050711
  Receipt Date: 20050630
  Transmission Date: 20060218
  Serious: Yes (Other)
  Sender: FDA-Public Use
  Company Number: 2005085706

PATIENT
  Sex: Male
  Weight: 71.6683 kg

DRUGS (8)
  1. NITROSTAT [Suspect]
     Indication: PROPHYLAXIS
     Dosage: (0.3 MG, PRN) SUBLINGUAL
     Route: 060
     Dates: start: 19830101
  2. NITROSTAT [Suspect]
  3. COZAAR [Concomitant]
  4. CORDARONE [Concomitant]
  5. TOPROL-XL [Concomitant]
  6. FUROSEMIDE (FUROSEMIDE) [Concomitant]
  7. POTASSIUM (POTASSIUM) [Concomitant]
  8. ZANTAC [Concomitant]

REACTIONS (4)
  - ANAEMIA [None]
  - BURNING SENSATION [None]
  - DRUG INEFFECTIVE [None]
  - PHARMACEUTICAL PRODUCT COMPLAINT [None]
